FAERS Safety Report 6882587-2 (Version None)
Quarter: 2010Q3

REPORT INFORMATION
  Report Type: 
  Country: None (occurrence: None)
  Receive Date: 20100729
  Receipt Date: 20100723
  Transmission Date: 20110219
  Serious: Yes (Life-Threatening)
  Sender: FDA-Public Use
  Company Number: AU-ROCHE-624245

PATIENT
  Sex: Male
  Weight: 98 kg

DRUGS (7)
  1. CAPECITABINE [Suspect]
     Indication: COLON CANCER
     Dosage: CYCLE 1 STARTED ON 16 SEPTEMBER 2008, CURRENT CYCLE NUMBER 8
     Route: 048
     Dates: start: 20080916
  2. CAPECITABINE [Suspect]
     Dosage: DOSAGE REPORTE AS DOSE REDUCTION 25 %, COMPLETED TRIAL DRUG.
     Route: 048
     Dates: start: 20090124
  3. SPIRIVA [Suspect]
     Route: 055
     Dates: start: 20040101
  4. BRICANYL [Suspect]
     Route: 055
     Dates: start: 20040101
  5. SYMBICORT [Suspect]
     Route: 055
     Dates: start: 20040101
  6. PANADOL [Suspect]
     Indication: PAIN
     Dosage: DOSAGE REPORTED AS ^WHEN NECESSARY FOR PAIN^
     Route: 048
     Dates: start: 20080101
  7. ETHICAL NUTRIENTS IBS SUPPORT [Suspect]
     Indication: IRRITABLE BOWEL SYNDROME
     Dosage: REPORTED DRUG- IBS SUPPORT
     Route: 048
     Dates: start: 20050101

REACTIONS (1)
  - PULMONARY HYPERTENSION [None]
